FAERS Safety Report 5123399-X (Version None)
Quarter: 2006Q4

REPORT INFORMATION
  Report Type: 
  Country: None (occurrence: None)
  Receive Date: 20061005
  Receipt Date: 20060922
  Transmission Date: 20070319
  Serious: Yes (Hospitalization)
  Sender: FDA-Public Use
  Company Number: JP200607004677

PATIENT
  Age: 36 Year
  Sex: Male
  Weight: 61 kg

DRUGS (5)
  1. ZYPREXA [Suspect]
     Indication: SCHIZOPHRENIA
     Dosage: 5 MG, 2/D, ORAL; SEE IMAGE
     Route: 048
     Dates: start: 20060120, end: 20060123
  2. ZYPREXA [Suspect]
     Indication: SCHIZOPHRENIA
     Dosage: 5 MG, 2/D, ORAL; SEE IMAGE
     Route: 048
     Dates: start: 20060123, end: 20060623
  3. AMOBAN (ZOPICLONE) TABLET [Concomitant]
  4. TREMIN (TRIHEXYPHENIDYL HYDROCHLORIDE) [Concomitant]
  5. RISPERDAL /SWE/ (RISPERIDONE) [Concomitant]

REACTIONS (6)
  - HICCUPS [None]
  - MALLORY-WEISS SYNDROME [None]
  - NAUSEA [None]
  - OESOPHAGITIS [None]
  - ORAL INTAKE REDUCED [None]
  - VOMITING [None]
